FAERS Safety Report 21638295 (Version 1)
Quarter: 2022Q4

REPORT INFORMATION
  Report Type: Report from Study
  Country: US (occurrence: US)
  Receive Date: 20221124
  Receipt Date: 20221124
  Transmission Date: 20230113
  Serious: No
  Sender: FDA-Public Use
  Company Number: US-ABBVIE-4168849

PATIENT
  Age: 30 Year
  Sex: Male

DRUGS (2)
  1. RINVOQ [Suspect]
     Active Substance: UPADACITINIB
     Indication: Dermatitis atopic
     Dosage: FORM STRENGTH: 15 MG
     Route: 048
     Dates: end: 20221017
  2. RINVOQ [Suspect]
     Active Substance: UPADACITINIB
     Indication: Dermatitis atopic
     Dosage: FORM STRENGTH: 15 MG
     Route: 048
     Dates: start: 202210

REACTIONS (8)
  - Pruritus [Recovered/Resolved]
  - Pruritus [Recovering/Resolving]
  - Scab [Unknown]
  - Flushing [Recovered/Resolved]
  - Gastrointestinal disorder [Unknown]
  - Rash [Recovering/Resolving]
  - Adverse food reaction [Unknown]
  - Impaired healing [Unknown]

NARRATIVE: CASE EVENT DATE: 20221001
